FAERS Safety Report 8487562-2 (Version None)
Quarter: 2012Q3

REPORT INFORMATION
  Report Type: 
  Country: None (occurrence: None)
  Receive Date: 20120705
  Receipt Date: 20120418
  Transmission Date: 20120928
  Serious: Yes (Hospitalization, Other)
  Sender: FDA-Public Use
  Company Number: CN-JNJFOC-20110507451

PATIENT
  Sex: Male
  Weight: 58 kg

DRUGS (2)
  1. RISPERDAL [Suspect]
     Route: 048
     Dates: start: 20050327, end: 20110527
  2. RISPERDAL [Suspect]
     Indication: SCHIZOPHRENIA
     Route: 048
     Dates: start: 20110201

REACTIONS (3)
  - HYPOTENSION [None]
  - BRADYCARDIA [None]
  - ARRHYTHMIA [None]
